FAERS Safety Report 25677375 (Version 2)
Quarter: 2025Q3

REPORT INFORMATION
  Report Type: Spontaneous
  Country: US (occurrence: US)
  Receive Date: 20250813
  Receipt Date: 20250930
  Transmission Date: 20251021
  Serious: No
  Sender: SANOFI AVENTIS
  Company Number: US-SA-2025SA237453

PATIENT
  Age: 43 Year
  Sex: Female

DRUGS (9)
  1. DUPIXENT [Suspect]
     Active Substance: DUPILUMAB
     Indication: Nasal polyps
     Route: 058
     Dates: start: 20250812
  2. ALBUTEROL SULFATE [Concomitant]
     Active Substance: ALBUTEROL SULFATE
  3. IBUPROFEN [Concomitant]
     Active Substance: IBUPROFEN
  4. IBUPROFEN [Concomitant]
     Active Substance: IBUPROFEN
  5. SEMAGLUTIDE [Concomitant]
     Active Substance: SEMAGLUTIDE
  6. SEMAGLUTIDE [Concomitant]
     Active Substance: SEMAGLUTIDE
  7. TYLENOL [Concomitant]
     Active Substance: ACETAMINOPHEN
  8. TYLENOL [Concomitant]
     Active Substance: ACETAMINOPHEN
  9. ADVAIR HFA [Concomitant]
     Active Substance: FLUTICASONE PROPIONATE\SALMETEROL XINAFOATE

REACTIONS (1)
  - Cough [Unknown]

NARRATIVE: CASE EVENT DATE: 20250924
